FAERS Safety Report 18219074 (Version 1)
Quarter: 2020Q3

REPORT INFORMATION
  Report Type: Spontaneous
  Country: JP (occurrence: JP)
  Receive Date: 20200901
  Receipt Date: 20200901
  Transmission Date: 20201103
  Serious: Yes (Other)
  Sender: FDA-Public Use
  Company Number: JP-BAYER-2020-168150

PATIENT
  Sex: Female

DRUGS (1)
  1. MIRENA [Suspect]
     Active Substance: LEVONORGESTREL
     Dosage: 20 ?G PER DAY, CONTINUOUSLY
     Route: 015
     Dates: end: 20200817

REACTIONS (7)
  - Genital haemorrhage [Not Recovered/Not Resolved]
  - Uterine injury [None]
  - Complication of device removal [None]
  - Procedural haemorrhage [None]
  - Oestradiol decreased [None]
  - Blood follicle stimulating hormone increased [None]
  - Blood luteinising hormone increased [None]

NARRATIVE: CASE EVENT DATE: 20200817
